FAERS Safety Report 24388295 (Version 1)
Quarter: 2024Q4

REPORT INFORMATION
  Report Type: Spontaneous
  Country: JP (occurrence: JP)
  Receive Date: 20241002
  Receipt Date: 20241002
  Transmission Date: 20250115
  Serious: Yes (Other)
  Sender: ELI LILLY AND CO
  Company Number: JP-Merck Healthcare KGaA-2024050424

PATIENT
  Age: 65 Year
  Sex: Male

DRUGS (4)
  1. ERBITUX [Suspect]
     Active Substance: CETUXIMAB
     Indication: Rectal cancer metastatic
     Dosage: 250 MG/M2, WEEKLY (1/W)
     Route: 041
     Dates: start: 20230725
  2. IRINOTECAN [Suspect]
     Active Substance: IRINOTECAN
     Indication: Rectal cancer metastatic
     Dosage: 200 MG/M2, UNK
     Route: 041
     Dates: start: 20230725
  3. FLUOROURACIL [Suspect]
     Active Substance: FLUOROURACIL
     Indication: Rectal cancer metastatic
     Dosage: 400 MG/M2, UNK
     Route: 040
     Dates: start: 20230725
  4. LEVOLEUCOVORIN CALCIUM [Concomitant]
     Active Substance: LEVOLEUCOVORIN CALCIUM
     Indication: Rectal cancer metastatic
     Dosage: 200 MG/M2, UNK
     Route: 041
     Dates: start: 20230725

REACTIONS (5)
  - Myelosuppression [Recovered/Resolved]
  - Rash [Not Recovered/Not Resolved]
  - Dermatitis acneiform [Recovered/Resolved]
  - Paronychia [Not Recovered/Not Resolved]
  - Hypomagnesaemia [Recovered/Resolved]
